FAERS Safety Report 24181000 (Version 1)
Quarter: 2024Q3

REPORT INFORMATION
  Report Type: Report from Study
  Country: US (occurrence: US)
  Receive Date: 20240806
  Receipt Date: 20240806
  Transmission Date: 20241016
  Serious: Yes (Hospitalization, Other)
  Sender: HLS THERAPEUTICS
  Company Number: US-HLS-202400500

PATIENT
  Age: 59 Year

DRUGS (1)
  1. CLOZAPINE [Suspect]
     Active Substance: CLOZAPINE
     Indication: Product used for unknown indication
     Route: 065

REACTIONS (10)
  - Mental status changes [Unknown]
  - Anxiety [Unknown]
  - Bipolar disorder [Unknown]
  - Confusional state [Unknown]
  - Depression [Unknown]
  - Fall [Unknown]
  - Fracture [Unknown]
  - Therapy interrupted [Unknown]
  - Post-traumatic stress disorder [Unknown]
  - Schizoaffective disorder [Unknown]

NARRATIVE: CASE EVENT DATE: 20240605
